FAERS Safety Report 10035354 (Version 1)
Quarter: 2014Q1

REPORT INFORMATION
  Report Type: Spontaneous
  Country: US (occurrence: US)
  Receive Date: 20140325
  Receipt Date: 20140325
  Transmission Date: 20141002
  Serious: No
  Sender: FDA-Public Use
  Company Number: US-009507513-1403USA009490

PATIENT
  Sex: Female

DRUGS (1)
  1. PRINIVIL [Suspect]

REACTIONS (2)
  - Drug hypersensitivity [Unknown]
  - Rash [Unknown]
